FAERS Safety Report 6783137-1 (Version None)
Quarter: 2010Q2

REPORT INFORMATION
  Report Type: 
  Country: None (occurrence: None)
  Receive Date: 20100622
  Receipt Date: 20100610
  Transmission Date: 20101027
  Serious: Yes (Disabling, Other)
  Sender: FDA-Public Use
  Company Number: AT-PFIZER INC-2010058942

PATIENT
  Age: 77 Year
  Sex: Female
  Weight: 77 kg

DRUGS (5)
  1. SALAZOPYRIN [Suspect]
     Indication: POLYARTHRITIS
     Dosage: 2000 MG, 1X/DAY
     Dates: start: 20050801
  2. CAL-D-VITA [Concomitant]
     Dosage: UNK
     Dates: start: 20091101
  3. COMBITHYREX [Concomitant]
     Dosage: UNK
     Dates: start: 19920101
  4. LISINOPRIL [Concomitant]
     Dosage: 5 MG, 2X/DAY
     Dates: start: 20100401
  5. ARAVA [Concomitant]
     Dosage: UNK
     Dates: start: 20070201, end: 20080101

REACTIONS (4)
  - DYSPHONIA [None]
  - PARESIS [None]
  - POLYARTHRITIS [None]
  - VIRAL INFECTION [None]
